FAERS Safety Report 5598515-6 (Version None)
Quarter: 2008Q1

REPORT INFORMATION
  Report Type: 
  Country: None (occurrence: None)
  Receive Date: 20080122
  Receipt Date: 20080114
  Transmission Date: 20080703
  Serious: Yes (Hospitalization, Other)
  Sender: FDA-Public Use
  Company Number: PHRM2007FR02900

PATIENT
  Age: 50 Year
  Sex: Female
  Weight: 85 kg

DRUGS (7)
  1. LASIX [Concomitant]
     Indication: HYPERTENSION
     Dosage: 20 MG/DAY
     Route: 048
  2. MEPRONIZINE [Concomitant]
     Route: 048
  3. LEPONEX [Suspect]
     Indication: MAJOR DEPRESSION
     Dosage: 350 MG/DAY
     Route: 048
     Dates: start: 20070803
  4. LEPONEX [Suspect]
     Dosage: 450 MG/DAY
     Route: 048
  5. LEPONEX [Suspect]
     Dosage: 300 MG/DAY
     Route: 048
  6. DIFFU K [Concomitant]
     Route: 048
  7. LYSANXIA [Concomitant]
     Route: 048

REACTIONS (7)
  - AGGRESSION [None]
  - COUGH [None]
  - DRUG INEFFECTIVE [None]
  - HALLUCINATION, AUDITORY [None]
  - INAPPROPRIATE AFFECT [None]
  - NERVOUSNESS [None]
  - TREMOR [None]
